FAERS Safety Report 10345861 (Version 2)
Quarter: 2014Q3

REPORT INFORMATION
  Report Type: Report from Study
  Country: US (occurrence: US)
  Receive Date: 20140728
  Receipt Date: 20140909
  Transmission Date: 20150326
  Serious: Yes (Death, Other)
  Sender: FDA-Public Use
  Company Number: US-BRISTOL-MYERS SQUIBB COMPANY-21227335

PATIENT

DRUGS (3)
  1. COMBIVIR [Suspect]
     Active Substance: LAMIVUDINE\ZIDOVUDINE
     Route: 064
     Dates: start: 20140508
  2. NORVIR [Suspect]
     Active Substance: RITONAVIR
     Dosage: 1CYCLE=1COURSE
     Route: 064
     Dates: start: 20140508
  3. REYATAZ [Suspect]
     Active Substance: ATAZANAVIR SULFATE
     Dosage: 1 CYCLE= 1 COURSE
     Route: 064
     Dates: start: 20140508

REACTIONS (3)
  - Foetal death [Fatal]
  - Pyelocaliectasis [Unknown]
  - Foetal exposure during pregnancy [Recovered/Resolved]

NARRATIVE: CASE EVENT DATE: 20140508
